FAERS Safety Report 7245174-2 (Version None)
Quarter: 2011Q1

REPORT INFORMATION
  Report Type: 
  Country: None (occurrence: None)
  Receive Date: 20110126
  Receipt Date: 20110120
  Transmission Date: 20110831
  Serious: Yes (Death)
  Sender: FDA-Public Use
  Company Number: FR-CELGENEUS-056-21880-10061915

PATIENT
  Sex: Male
  Weight: 68 kg

DRUGS (3)
  1. REVLIMID [Suspect]
     Indication: MULTIPLE MYELOMA
     Route: 048
     Dates: start: 20090819, end: 20091108
  2. AREDIA [Suspect]
     Indication: MULTIPLE MYELOMA
     Route: 051
     Dates: start: 20090708, end: 20091109
  3. VELCADE [Suspect]
     Indication: MULTIPLE MYELOMA
     Route: 065
     Dates: start: 20091109, end: 20091124

REACTIONS (2)
  - MULTIPLE MYELOMA [None]
  - PNEUMONIA [None]
